FAERS Safety Report 10158566 (Version 2)
Quarter: 2015Q4

REPORT INFORMATION
  Report Type: Spontaneous
  Country: CL (occurrence: CL)
  Receive Date: 20140507
  Receipt Date: 20151001
  Transmission Date: 20160304
  Serious: Yes (Hospitalization, Other)
  Sender: FDA-Public Use
  Company Number: CL-PFIZER INC-2014124760

PATIENT
  Age: 73 Year
  Sex: Female

DRUGS (3)
  1. BILATEN-D [Concomitant]
  2. GLAUCOTENSIL [Concomitant]
     Dosage: 1 DROP, 2X/DAY
  3. XALATAN [Suspect]
     Active Substance: LATANOPROST
     Indication: GLAUCOMA
     Dosage: 1 DROP, 1X/DAY
     Route: 047
     Dates: start: 2007

REACTIONS (6)
  - Hypertension [Recovered/Resolved]
  - Hypoacusis [Not Recovered/Not Resolved]
  - Headache [Recovered/Resolved]
  - Condition aggravated [Recovered/Resolved]
  - Vertigo [Unknown]
  - Cataract [Unknown]

NARRATIVE: CASE EVENT DATE: 2013
